FAERS Safety Report 10380406 (Version 6)
Quarter: 2018Q2

REPORT INFORMATION
  Report Type: Report from Study
  Country: US (occurrence: US)
  Receive Date: 20140813
  Receipt Date: 20180613
  Transmission Date: 20180711
  Serious: Yes (Other)
  Sender: FDA-Public Use
  Company Number: US-AMGEN-USASP2014060868

PATIENT
  Age: 36 Year
  Sex: Female

DRUGS (3)
  1. METHOTREXATE. [Suspect]
     Active Substance: METHOTREXATE
     Indication: PRODUCT USED FOR UNKNOWN INDICATION
     Dosage: UNK
     Route: 065
  2. ENBREL [Suspect]
     Active Substance: ETANERCEPT
     Indication: RHEUMATOID ARTHRITIS
     Dosage: 50 MG, QWK
     Route: 065
     Dates: start: 201201
  3. ENBREL [Suspect]
     Active Substance: ETANERCEPT
     Dosage: 50 MG, QWK
     Route: 065

REACTIONS (12)
  - Influenza [Unknown]
  - Hypertension [Unknown]
  - Skin reaction [Recovered/Resolved]
  - Rheumatoid arthritis [Recovering/Resolving]
  - Restless legs syndrome [Unknown]
  - Weight decreased [Not Recovered/Not Resolved]
  - Atypical pneumonia [Recovered/Resolved]
  - Insomnia [Unknown]
  - Hepatic enzyme increased [Recovered/Resolved]
  - Bronchitis [Unknown]
  - Pruritus [Recovered/Resolved]
  - Injection site pain [Recovered/Resolved]

NARRATIVE: CASE EVENT DATE: 2012
